FAERS Safety Report 4684977-5 (Version None)
Quarter: 2005Q2

REPORT INFORMATION
  Report Type: 
  Country: None (occurrence: None)
  Receive Date: 20050531
  Receipt Date: 20050315
  Transmission Date: 20051028
  Serious: No
  Sender: FDA-Public Use
  Company Number: WAES 0503USA02478

PATIENT
  Age: 72 Year
  Sex: Female

DRUGS (6)
  1. ZETIA [Suspect]
     Indication: BLOOD CHOLESTEROL INCREASED
     Dosage: 10 MG/DAILY/PO
     Route: 048
     Dates: start: 20050225, end: 20050314
  2. FOSAMAX [Concomitant]
  3. INDERAL LA [Concomitant]
  4. MIACALCIN [Concomitant]
  5. PROCARDIA XL [Concomitant]
  6. ZOCOR [Concomitant]

REACTIONS (4)
  - MYALGIA [None]
  - OEDEMA PERIPHERAL [None]
  - PARAESTHESIA [None]
  - TENDERNESS [None]
